FAERS Safety Report 23156593 (Version 1)
Quarter: 2023Q4

REPORT INFORMATION
  Report Type: Report from Study
  Country: US (occurrence: US)
  Receive Date: 20231107
  Receipt Date: 20231107
  Transmission Date: 20240110
  Serious: Yes (Other)
  Sender: FDA-Public Use
  Company Number: US-ABBVIE-5484683

PATIENT
  Sex: Male

DRUGS (4)
  1. SKYRIZI [Suspect]
     Active Substance: RISANKIZUMAB-RZAA
     Indication: Crohn^s disease
     Dosage: STRENGTH:  180MG/1.2ML?WEEK 12?FIRST ADMIN DATE: 2023
     Route: 058
  2. SKYRIZI [Suspect]
     Active Substance: RISANKIZUMAB-RZAA
     Indication: Crohn^s disease
     Dosage: TIME INTERVAL: TOTAL: STRENGTH: 600 MILLIGRAM?WEEK 4
     Route: 042
     Dates: start: 20230827, end: 20230827
  3. SKYRIZI [Suspect]
     Active Substance: RISANKIZUMAB-RZAA
     Indication: Crohn^s disease
     Dosage: TIME INTERVAL: TOTAL: STRENGTH: 600 MILLIGRAM?WEEK 8
     Route: 042
     Dates: start: 20230925, end: 20230925
  4. SKYRIZI [Suspect]
     Active Substance: RISANKIZUMAB-RZAA
     Indication: Crohn^s disease
     Dosage: TIME INTERVAL: TOTAL: STRENGTH: 600 MILLIGRAM?WEEK 0
     Route: 042
     Dates: start: 20230804, end: 20230804

REACTIONS (6)
  - Biopsy pharynx [Unknown]
  - Diarrhoea [Unknown]
  - Throat tightness [Unknown]
  - Drug hypersensitivity [Recovered/Resolved]
  - Headache [Unknown]
  - Choking [Unknown]

NARRATIVE: CASE EVENT DATE: 20230101
